FAERS Safety Report 4886257-1 (Version None)
Quarter: 2006Q1

REPORT INFORMATION
  Report Type: 
  Country: None (occurrence: None)
  Receive Date: 20060118
  Receipt Date: 20060118
  Transmission Date: 20060701
  Serious: Yes (Other)
  Sender: FDA-Public Use
  Company Number: None

PATIENT
  Age: 72 Year
  Sex: Male
  Weight: 85.7298 kg

DRUGS (2)
  1. ZETIA [Suspect]
     Indication: BLOOD TRIGLYCERIDES INCREASED
     Dosage: 10 MG  DAILY  PO
     Route: 048
     Dates: start: 20060106, end: 20060110
  2. ZETIA [Suspect]
     Indication: LABORATORY TEST ABNORMAL
     Dosage: 10 MG  DAILY  PO
     Route: 048
     Dates: start: 20060106, end: 20060110

REACTIONS (3)
  - BACK PAIN [None]
  - CONTUSION [None]
  - OEDEMA PERIPHERAL [None]
